FAERS Safety Report 8294115-8 (Version None)
Quarter: 2012Q2

REPORT INFORMATION
  Report Type: 
  Country: None (occurrence: None)
  Receive Date: 20120418
  Receipt Date: 20120406
  Transmission Date: 20120825
  Serious: Yes (Other)
  Sender: FDA-Public Use
  Company Number: PHHY2010US46503

PATIENT
  Sex: Female

DRUGS (4)
  1. GLEEVEC [Suspect]
     Indication: CHRONIC MYELOID LEUKAEMIA
     Dosage: 400 MG, DAILY
     Route: 048
     Dates: start: 20080623
  2. GLEEVEC [Suspect]
     Dosage: 400 MG, QD
     Route: 048
     Dates: start: 20110408
  3. BONIVA [Concomitant]
  4. GLEEVEC [Suspect]
     Dosage: 1 DF, DAILY
     Route: 048
     Dates: start: 20110408

REACTIONS (19)
  - OEDEMA [None]
  - NAUSEA [None]
  - CHEST PAIN [None]
  - LABYRINTHITIS [None]
  - DYSPEPSIA [None]
  - VOMITING [None]
  - FATIGUE [None]
  - VERTIGO [None]
  - ACNE [None]
  - PRURITUS [None]
  - RASH [None]
  - PAIN [None]
  - HAEMOGLOBIN DECREASED [None]
  - DIZZINESS [None]
  - ABDOMINAL DISCOMFORT [None]
  - OTORRHOEA [None]
  - FULL BLOOD COUNT DECREASED [None]
  - DIARRHOEA [None]
  - WEIGHT DECREASED [None]
